FAERS Safety Report 9265716 (Version 1)
Quarter: 2013Q2

REPORT INFORMATION
  Report Type: Spontaneous
  Country: ES (occurrence: ES)
  Receive Date: 20130501
  Receipt Date: 20130501
  Transmission Date: 20140414
  Serious: Yes (Hospitalization, Other)
  Sender: FDA-Public Use
  Company Number: ES-BAXTER-2013BAX015303

PATIENT
  Age: 75 Year
  Sex: Male
  Weight: 117 kg

DRUGS (5)
  1. TRONOXAL 1G INYECTABLE [Suspect]
     Indication: NON-HODGKIN^S LYMPHOMA
     Route: 042
     Dates: start: 20121226, end: 20121228
  2. RITUXIMAB [Suspect]
     Indication: NON-HODGKIN^S LYMPHOMA
     Route: 042
     Dates: start: 20121226, end: 20121226
  3. PRALIFAN [Suspect]
     Indication: NON-HODGKIN^S LYMPHOMA
     Route: 042
     Dates: start: 20121226, end: 20121226
  4. ETOPOSIDE [Suspect]
     Indication: NON-HODGKIN^S LYMPHOMA
     Route: 042
     Dates: start: 20121226, end: 20121228
  5. MESNA [Suspect]
     Indication: NON-HODGKIN^S LYMPHOMA
     Route: 042
     Dates: start: 20121226, end: 20121228

REACTIONS (3)
  - Neurotoxicity [Recovered/Resolved]
  - Respiratory tract infection [Recovered/Resolved]
  - Rectal haemorrhage [Unknown]
